FAERS Safety Report 5770161-0 (Version None)
Quarter: 2008Q2

REPORT INFORMATION
  Report Type: 
  Country: None (occurrence: None)
  Receive Date: 20080613
  Receipt Date: 20080510
  Transmission Date: 20081010
  Serious: No
  Sender: FDA-Public Use
  Company Number: US-ABBOTT-08P-163-0448646-00

PATIENT
  Sex: Female
  Weight: 74.91 kg

DRUGS (9)
  1. HUMIRA [Suspect]
     Indication: PSORIATIC ARTHROPATHY
     Route: 058
     Dates: start: 20070101, end: 20080415
  2. HUMIRA [Suspect]
     Indication: RHEUMATOID ARTHRITIS
  3. PREDNISONE TAB [Concomitant]
     Indication: PSORIATIC ARTHROPATHY
     Route: 048
  4. PREDNISONE TAB [Concomitant]
     Indication: RHEUMATOID ARTHRITIS
  5. METHOTREXATE [Concomitant]
     Indication: PSORIATIC ARTHROPATHY
     Route: 048
     Dates: start: 20080401
  6. METHOTREXATE [Concomitant]
     Indication: RHEUMATOID ARTHRITIS
  7. QUINAPRIL HCL [Concomitant]
     Indication: HYPERTENSION
     Route: 048
  8. PAROXETINE HCL [Concomitant]
     Indication: DEPRESSION
     Route: 048
  9. ACETAMINOPHEN [Concomitant]
     Indication: PAIN
     Route: 048

REACTIONS (4)
  - PRURITUS [None]
  - RASH PRURITIC [None]
  - SWELLING FACE [None]
  - URTICARIA [None]
